FAERS Safety Report 12219203 (Version 3)
Quarter: 2016Q2

REPORT INFORMATION
  Report Type: Report from Study
  Country: DE (occurrence: CL)
  Receive Date: 20160329
  Receipt Date: 20160505
  Transmission Date: 20160815
  Serious: Yes (Other)
  Sender: FDA-Public Use
  Company Number: DE-ACTELION-A-NJ2016-133633

PATIENT
  Age: 34 Year
  Sex: Female

DRUGS (8)
  1. SPIRONOLACTONE. [Suspect]
     Active Substance: SPIRONOLACTONE
     Indication: PRODUCT USED FOR UNKNOWN INDICATION
     Route: 065
  2. IPRATROPIUM [Concomitant]
     Active Substance: IPRATROPIUM
  3. ACENOCOUMAROL [Concomitant]
     Active Substance: ACENOCOUMAROL
  4. AEROTROP [Concomitant]
  5. SILDENAFIL. [Concomitant]
     Active Substance: SILDENAFIL
  6. VENTAVIS [Suspect]
     Active Substance: ILOPROST
     Indication: PULMONARY HYPERTENSION
     Dosage: UNK
     Route: 055
     Dates: start: 20140806
  7. AEROVIAL [Concomitant]
  8. VENTAVIS [Suspect]
     Active Substance: ILOPROST
     Dosage: 1 ML, 8/D
     Route: 055

REACTIONS (14)
  - Hypersensitivity [Recovering/Resolving]
  - Unevaluable event [Unknown]
  - Back pain [Unknown]
  - Body temperature decreased [Recovering/Resolving]
  - Pruritus [Not Recovered/Not Resolved]
  - Influenza [Unknown]
  - Laboratory test abnormal [Unknown]
  - Haemoptysis [Unknown]
  - Contusion [Recovering/Resolving]
  - Oxygen saturation decreased [Recovering/Resolving]
  - Pneumonia [Recovering/Resolving]
  - Cough [Unknown]
  - Oedema peripheral [Recovering/Resolving]
  - Headache [Unknown]

NARRATIVE: CASE EVENT DATE: 20160208
